FAERS Safety Report 14055048 (Version 1)
Quarter: 2017Q4

REPORT INFORMATION
  Report Type: Spontaneous
  Country: US (occurrence: None)
  Receive Date: 20171006
  Receipt Date: 20171006
  Transmission Date: 20180321
  Serious: Yes (Hospitalization)
  Sender: FDA-Public Use
  Company Number: None

PATIENT
  Age: 54 Year
  Sex: Female
  Weight: 72 kg

DRUGS (2)
  1. EVEROLIMUS (RAD-001) [Suspect]
     Active Substance: EVEROLIMUS
     Dates: end: 20120711
  2. SANDOSTATIN [Suspect]
     Active Substance: OCTREOTIDE ACETATE
     Dates: end: 20120720

REACTIONS (5)
  - Pneumothorax [None]
  - Procedural complication [None]
  - Cough [None]
  - Pneumonitis [None]
  - Cardio-respiratory arrest [None]

NARRATIVE: CASE EVENT DATE: 20120801
